FAERS Safety Report 23089249 (Version 1)
Quarter: 2023Q4

REPORT INFORMATION
  Report Type: Spontaneous
  Country: CN (occurrence: None)
  Receive Date: 20231020
  Receipt Date: 20231020
  Transmission Date: 20240110
  Serious: Yes (Other)
  Sender: FDA-Public Use
  Company Number: 2023A237532

PATIENT
  Age: 25654 Day
  Sex: Male
  Weight: 62 kg

DRUGS (6)
  1. TICAGRELOR [Suspect]
     Active Substance: TICAGRELOR
     Indication: Pulmonary mass
     Route: 048
     Dates: start: 20230918, end: 20230918
  2. RIVAROXABAN [Suspect]
     Active Substance: RIVAROXABAN
     Indication: Pulmonary mass
     Dosage: 15.000000 MG, ONCE EVERY ONE DAY
     Route: 048
     Dates: start: 20230919, end: 20230920
  3. RIVAROXABAN [Suspect]
     Active Substance: RIVAROXABAN
     Indication: Coagulopathy
     Dosage: 15.000000 MG, ONCE EVERY ONE DAY
     Route: 048
     Dates: start: 20230919, end: 20230920
  4. ASPIRIN [Concomitant]
     Active Substance: ASPIRIN
     Route: 048
  5. ROSUVASTATIN CALCIUM [Concomitant]
     Active Substance: ROSUVASTATIN CALCIUM
     Route: 048
  6. SOMATOSTATIN [Concomitant]
     Active Substance: SOMATOSTATIN

REACTIONS (5)
  - Lower gastrointestinal haemorrhage [Recovering/Resolving]
  - Upper gastrointestinal haemorrhage [Recovering/Resolving]
  - Venous thrombosis limb [Recovering/Resolving]
  - Pulmonary embolism [Unknown]
  - Acute myocardial infarction [Unknown]

NARRATIVE: CASE EVENT DATE: 20230920
